FAERS Safety Report 7059475-4 (Version None)
Quarter: 2010Q4

REPORT INFORMATION
  Report Type: 
  Country: None (occurrence: None)
  Receive Date: 20101025
  Receipt Date: 20101018
  Transmission Date: 20110411
  Serious: Yes (Hospitalization)
  Sender: FDA-Public Use
  Company Number: SE-WYE-H18274510

PATIENT
  Age: 59 Year
  Sex: Female

DRUGS (7)
  1. PANTOLOC [Suspect]
     Route: 048
     Dates: end: 20100823
  2. PROGRAF [Concomitant]
     Dosage: UNKNOWN
  3. FRAGMIN [Concomitant]
     Dosage: 2500 IE/ML
  4. PAMOL [Concomitant]
     Dosage: UNKNOWN
  5. BACTRIM [Concomitant]
     Dosage: 400 MG/80MG
  6. CELLCEPT [Suspect]
     Dosage: UNKNOWN
     Dates: start: 20100601, end: 20100901
  7. VALCYTE [Concomitant]
     Dosage: UNKNOWN

REACTIONS (6)
  - DEHYDRATION [None]
  - DIARRHOEA [None]
  - FALL [None]
  - FATIGUE [None]
  - NAUSEA [None]
  - TUBULOINTERSTITIAL NEPHRITIS [None]
